FAERS Safety Report 9153338 (Version 1)
Quarter: 2013Q1

REPORT INFORMATION
  Report Type: Spontaneous
  Country: US (occurrence: US)
  Receive Date: 20130311
  Receipt Date: 20130311
  Transmission Date: 20140127
  Serious: No
  Sender: FDA-Public Use
  Company Number: US-BIOGENIDEC-2013BI022137

PATIENT
  Age: 50 Year
  Sex: Female

DRUGS (3)
  1. TYSABRI [Suspect]
     Indication: MULTIPLE SCLEROSIS
     Route: 042
     Dates: start: 20080204
  2. IV STEROIDS [Concomitant]
     Indication: EYE MOVEMENT DISORDER
  3. IV STEROIDS [Concomitant]
     Indication: SCOTOMA

REACTIONS (1)
  - Nasopharyngitis [Recovered/Resolved]
